FAERS Safety Report 6998889-5 (Version None)
Quarter: 2010Q3

REPORT INFORMATION
  Report Type: 
  Country: None (occurrence: None)
  Receive Date: 20100920
  Receipt Date: 20100202
  Transmission Date: 20110219
  Serious: No
  Sender: FDA-Public Use
  Company Number: US-ASTRAZENECA-2010SE05402

PATIENT
  Age: 15 Year

DRUGS (1)
  1. SEROQUEL [Suspect]
     Route: 048

REACTIONS (3)
  - HYPNAGOGIC HALLUCINATION [None]
  - OFF LABEL USE [None]
  - PARASOMNIA [None]
